FAERS Safety Report 7477622-7 (Version None)
Quarter: 2011Q2

REPORT INFORMATION
  Report Type: 
  Country: None (occurrence: None)
  Receive Date: 20110513
  Receipt Date: 20110105
  Transmission Date: 20111010
  Serious: Yes (Hospitalization, Other)
  Sender: FDA-Public Use
  Company Number: US-BAYER-201029715NA

PATIENT
  Age: 16 Year
  Sex: Female
  Weight: 65.306 kg

DRUGS (4)
  1. YASMIN [Suspect]
     Indication: ACNE
  2. YASMIN [Suspect]
     Indication: CONTRACEPTION
     Dosage: UNK UNK, UNK
     Route: 048
     Dates: start: 20061001, end: 20080701
  3. BACTRIM [Concomitant]
  4. NASACORT AQ [Concomitant]

REACTIONS (7)
  - PROCEDURAL PAIN [None]
  - GALLBLADDER INJURY [None]
  - ASCITES [None]
  - SCAR [None]
  - LEUKOCYTOSIS [None]
  - CHOLECYSTITIS ACUTE [None]
  - ABDOMINAL PAIN [None]
